FAERS Safety Report 5973671-6 (Version None)
Quarter: 2008Q4

REPORT INFORMATION
  Report Type: 
  Country: None (occurrence: None)
  Receive Date: 20081201
  Receipt Date: 20081119
  Transmission Date: 20090506
  Serious: Yes (Hospitalization, Other)
  Sender: FDA-Public Use
  Company Number: US-ELI_LILLY_AND_COMPANY-US200811004811

PATIENT
  Age: 68 Year
  Sex: Male

DRUGS (1)
  1. ZYPREXA [Suspect]
     Indication: BIPOLAR DISORDER
     Dosage: 10 MG, EACH MORNING

REACTIONS (6)
  - ANGINA PECTORIS [None]
  - DYSPNOEA [None]
  - IMPLANTABLE DEFIBRILLATOR INSERTION [None]
  - MENTAL DISORDER [None]
  - PSYCHOMOTOR HYPERACTIVITY [None]
  - SWELLING [None]
